FAERS Safety Report 4791309-0 (Version None)
Quarter: 2005Q4

REPORT INFORMATION
  Report Type: 
  Country: None (occurrence: None)
  Receive Date: 20051007
  Receipt Date: 20050927
  Transmission Date: 20060501
  Serious: Yes (Death, Life-Threatening)
  Sender: FDA-Public Use
  Company Number: PL-JNJFOC-20050906692

PATIENT
  Sex: Male
  Weight: 90 kg

DRUGS (7)
  1. REOPRO [Suspect]
     Indication: INFARCTION
     Dosage: 4 ML/KG
     Route: 042
  2. HEPARINA [Concomitant]
  3. POLOPIRYNA [Concomitant]
  4. ENOXAPARIN SODIUM [Concomitant]
  5. DOPAMINE [Concomitant]
  6. ZOCOR [Concomitant]
  7. MAGNESIUM SULFATE [Concomitant]

REACTIONS (7)
  - ALANINE AMINOTRANSFERASE INCREASED [None]
  - ASPARTATE AMINOTRANSFERASE INCREASED [None]
  - BLOOD CREATININE INCREASED [None]
  - BLOOD UREA INCREASED [None]
  - CARDIAC ARREST [None]
  - GASTROINTESTINAL HAEMORRHAGE [None]
  - MALAISE [None]
